FAERS Safety Report 12837921 (Version 1)
Quarter: 2016Q4

REPORT INFORMATION
  Report Type: Report from Study
  Country: FR (occurrence: FR)
  Receive Date: 20161012
  Receipt Date: 20161012
  Transmission Date: 20170207
  Serious: Yes (Hospitalization, Other)
  Sender: FDA-Public Use
  Company Number: FR-ROCHE-1164889

PATIENT
  Age: 67 Year
  Sex: Female

DRUGS (17)
  1. RITUXIMAB [Suspect]
     Active Substance: RITUXIMAB
     Dosage: 1G (D1)
     Route: 042
     Dates: start: 20080603
  2. RITUXIMAB [Suspect]
     Active Substance: RITUXIMAB
     Dosage: 1G (D1)
     Route: 042
     Dates: start: 20111024
  3. RITUXIMAB [Suspect]
     Active Substance: RITUXIMAB
     Dosage: 1G (D1)
     Route: 042
     Dates: start: 20080108
  4. RITUXIMAB [Suspect]
     Active Substance: RITUXIMAB
     Dosage: 1G (D15)
     Route: 042
     Dates: start: 20080122
  5. RITUXIMAB [Suspect]
     Active Substance: RITUXIMAB
     Dosage: 1G D15
     Route: 042
     Dates: start: 20061108
  6. RITUXIMAB [Suspect]
     Active Substance: RITUXIMAB
     Dosage: 1G (D1)
     Route: 042
     Dates: start: 20090326
  7. RITUXIMAB [Suspect]
     Active Substance: RITUXIMAB
     Dosage: 1G (D15)
     Route: 042
     Dates: start: 20100720
  8. CORTANCYL [Concomitant]
     Active Substance: PREDNISONE
     Dosage: 20 MG QD AT DAY 1, 10 MG QD AT DAY 15, 5 MG QD AND 2 MG QD, 2.5 MG/DAY
     Route: 065
  9. RITUXIMAB [Suspect]
     Active Substance: RITUXIMAB
     Dosage: 1G (D15)
     Route: 042
     Dates: start: 20070620
  10. RITUXIMAB [Suspect]
     Active Substance: RITUXIMAB
     Dosage: 1G (D15)
     Route: 042
     Dates: start: 20090409
  11. RITUXIMAB [Suspect]
     Active Substance: RITUXIMAB
     Dosage: 1G D1
     Route: 042
     Dates: start: 20070606
  12. RITUXIMAB [Suspect]
     Active Substance: RITUXIMAB
     Dosage: 1G (D15)
     Route: 042
     Dates: start: 20080617
  13. RITUXIMAB [Suspect]
     Active Substance: RITUXIMAB
     Dosage: 1G (D1)
     Route: 042
     Dates: start: 20100706
  14. RITUXIMAB [Suspect]
     Active Substance: RITUXIMAB
     Indication: RHEUMATOID ARTHRITIS
     Dosage: 1G (D1)
     Route: 042
     Dates: start: 20061025
  15. RITUXIMAB [Suspect]
     Active Substance: RITUXIMAB
     Dosage: 1G (D1)
     Route: 042
     Dates: start: 20110215
  16. RITUXIMAB [Suspect]
     Active Substance: RITUXIMAB
     Dosage: 1G (D15)
     Route: 042
     Dates: start: 20110301
  17. RITUXIMAB [Suspect]
     Active Substance: RITUXIMAB
     Dosage: 1G (D15)
     Route: 042
     Dates: start: 20111109

REACTIONS (17)
  - Infusion related reaction [Recovered/Resolved]
  - Infection [Unknown]
  - Major depression [Not Recovered/Not Resolved]
  - Headache [Recovered/Resolved]
  - Diarrhoea [Recovered/Resolved]
  - Flushing [Recovered/Resolved]
  - Abdominal pain [Recovered/Resolved]
  - Weight decreased [Recovered/Resolved]
  - Hypertriglyceridaemia [Not Recovered/Not Resolved]
  - Anaphylactic reaction [Unknown]
  - Lung disorder [Unknown]
  - Asthenia [Recovered/Resolved]
  - Vomiting [Recovered/Resolved]
  - Myocardial infarction [Recovered/Resolved]
  - Pneumonia [Recovered/Resolved]
  - Sinus tachycardia [Not Recovered/Not Resolved]
  - Productive cough [Recovered/Resolved]

NARRATIVE: CASE EVENT DATE: 200807
